FAERS Safety Report 25166960 (Version 1)
Quarter: 2025Q2

REPORT INFORMATION
  Report Type: Spontaneous
  Country: US (occurrence: None)
  Receive Date: 20250404
  Receipt Date: 20250404
  Transmission Date: 20250717
  Serious: Yes (Disabling)
  Sender: FDA-CTU
  Company Number: None

PATIENT
  Age: 21 Year
  Sex: Female
  Weight: 57.15 kg

DRUGS (8)
  1. HIZENTRA [Suspect]
     Active Substance: HUMAN IMMUNOGLOBULIN G
     Indication: Combined immunodeficiency
     Route: 058
     Dates: start: 20250328
  2. LINZESS [Concomitant]
     Active Substance: LINACLOTIDE
  3. APRISO [Concomitant]
     Active Substance: MESALAMINE
  4. GEMTESA [Concomitant]
     Active Substance: VIBEGRON
  5. CONCERTA [Concomitant]
     Active Substance: METHYLPHENIDATE HYDROCHLORIDE
  6. BUSPAR [Concomitant]
     Active Substance: BUSPIRONE HYDROCHLORIDE
  7. VISTARIL [Concomitant]
     Active Substance: HYDROXYZINE PAMOATE
  8. SONATA [Concomitant]
     Active Substance: ZALEPLON

REACTIONS (5)
  - Pharyngeal swelling [None]
  - Pulmonary pain [None]
  - Pharyngitis streptococcal [None]
  - Injection site swelling [None]
  - Injection site pain [None]

NARRATIVE: CASE EVENT DATE: 20250403
